FAERS Safety Report 6644647-0 (Version None)
Quarter: 2010Q1

REPORT INFORMATION
  Report Type: 
  Country: None (occurrence: None)
  Receive Date: 20100322
  Receipt Date: 20100316
  Transmission Date: 20100710
  Serious: Yes (Other)
  Sender: FDA-Public Use
  Company Number: GB-MERCK-1003GBR00088

PATIENT
  Age: 15 Year
  Sex: Male
  Weight: 81 kg

DRUGS (2)
  1. SINGULAIR [Suspect]
     Indication: ASTHMA EXERCISE INDUCED
     Route: 048
     Dates: start: 20090601, end: 20100128
  2. ALBUTEROL [Concomitant]
     Route: 055

REACTIONS (1)
  - PSYCHOTIC DISORDER [None]
